FAERS Safety Report 10490406 (Version 2)
Quarter: 2014Q4

REPORT INFORMATION
  Report Type: Spontaneous
  Country: BE (occurrence: BE)
  Receive Date: 20141002
  Receipt Date: 20141006
  Transmission Date: 20150528
  Serious: Yes (Hospitalization)
  Sender: FDA-Public Use
  Company Number: BE-TEVA-479646ISR

PATIENT
  Age: 61 Year
  Sex: Female

DRUGS (9)
  1. IBUPROFEN. [Suspect]
     Active Substance: IBUPROFEN
     Indication: PROCEDURAL PAIN
     Route: 065
  2. MANIPREX [Interacting]
     Active Substance: LITHIUM CARBONATE
     Indication: BIPOLAR DISORDER
     Dosage: 750 MILLIGRAM DAILY;
     Route: 065
  3. VOLTAREN [Interacting]
     Active Substance: DICLOFENAC SODIUM
     Indication: PROCEDURAL PAIN
     Dosage: 75MG; PROLONGED RELEASE
     Route: 065
  4. SERTRALINE EG [Concomitant]
     Active Substance: SERTRALINE HYDROCHLORIDE
     Dosage: 100MG
     Route: 065
  5. TRAZODONE MYLAN [Concomitant]
     Dosage: 100MG
     Route: 065
  6. NOVOMIX [Concomitant]
     Active Substance: INSULIN ASPART
     Route: 065
  7. TEMESTA [Concomitant]
     Active Substance: LORAZEPAM
     Dosage: 2.5MG
     Route: 065
  8. FENOGAL LIDOSE [Concomitant]
     Dosage: 267MG
     Route: 065
  9. ZYPREXA [Concomitant]
     Active Substance: OLANZAPINE
     Dosage: 2.5MG
     Route: 065

REACTIONS (7)
  - Loss of consciousness [Unknown]
  - Coma [Unknown]
  - Acute kidney injury [Recovered/Resolved]
  - Drug interaction [Recovering/Resolving]
  - Hypoglycaemia [Recovered/Resolved]
  - Toxicity to various agents [Recovering/Resolving]
  - Agitation [Unknown]
